FAERS Safety Report 18514546 (Version 1)
Quarter: 2020Q4

REPORT INFORMATION
  Report Type: Spontaneous
  Country: CA (occurrence: CA)
  Receive Date: 20201117
  Receipt Date: 20201117
  Transmission Date: 20210114
  Serious: Yes (Other)
  Sender: FDA-Public Use
  Company Number: CA-JNJFOC-20201120279

PATIENT
  Age: 17 Year
  Sex: Female

DRUGS (3)
  1. INFLIXIMAB, RECOMBINANT [Suspect]
     Active Substance: INFLIXIMAB
     Indication: COLITIS ULCERATIVE
     Route: 042
  2. MESALAZINE [Concomitant]
     Active Substance: MESALAMINE
     Route: 065
  3. 5-ASA [Concomitant]
     Active Substance: MESALAMINE
     Dosage: TABLET (ENTERICCOATED)
     Route: 065

REACTIONS (2)
  - Pericarditis [Unknown]
  - Pyrexia [Unknown]
